FAERS Safety Report 13277519 (Version 1)
Quarter: 2017Q1

REPORT INFORMATION
  Report Type: Spontaneous
  Country: IR (occurrence: IR)
  Receive Date: 20170228
  Receipt Date: 20170228
  Transmission Date: 20170428
  Serious: Yes (Hospitalization, Other)
  Sender: FDA-Public Use
  Company Number: IR-ELITE LABORATORIES INC.-2017ELT00001

PATIENT
  Age: 64 Year
  Sex: Male

DRUGS (2)
  1. NALTREXONE [Suspect]
     Active Substance: NALTREXONE
  2. METHADONE [Suspect]
     Active Substance: METHADONE HYDROCHLORIDE
     Indication: DRUG DEPENDENCE
     Dosage: 40 MG, 1X/DAY

REACTIONS (3)
  - Myocardial infarction [Recovering/Resolving]
  - Drug withdrawal syndrome [Recovering/Resolving]
  - Ventricular hypokinesia [Unknown]
